FAERS Safety Report 22989831 (Version 3)
Quarter: 2023Q4

REPORT INFORMATION
  Report Type: Report from Study
  Country: JP (occurrence: JP)
  Receive Date: 20230927
  Receipt Date: 20231018
  Transmission Date: 20240109
  Serious: Yes (Death)
  Sender: FDA-Public Use
  Company Number: JP-SA-2023SA291434

PATIENT
  Age: 28 Year
  Sex: Male

DRUGS (1)
  1. CAPLACIZUMAB [Suspect]
     Active Substance: CAPLACIZUMAB
     Indication: Thrombotic thrombocytopenic purpura
     Dosage: UNK
     Route: 042
     Dates: start: 20230925, end: 20230925

REACTIONS (2)
  - Disease progression [Fatal]
  - Purpura [Fatal]

NARRATIVE: CASE EVENT DATE: 20230925
